FAERS Safety Report 10530813 (Version 1)
Quarter: 2014Q4

REPORT INFORMATION
  Report Type: Spontaneous
  Country: GB (occurrence: GB)
  Receive Date: 20141021
  Receipt Date: 20141021
  Transmission Date: 20150528
  Serious: Yes (Life-Threatening, Hospitalization)
  Sender: FDA-Public Use
  Company Number: GB-JNJFOC-20141011168

PATIENT
  Age: 29 Year
  Sex: Female

DRUGS (2)
  1. PARACETAMOL [Suspect]
     Active Substance: ACETAMINOPHEN
     Indication: PELVIC PAIN
     Dosage: UP TO 4 DOSES
     Route: 065
  2. COCODAMOL [Suspect]
     Active Substance: ACETAMINOPHEN\CODEINE PHOSPHATE
     Indication: PELVIC PAIN
     Dosage: 6 MONTHS
     Route: 065

REACTIONS (3)
  - Exposure during pregnancy [Unknown]
  - Accidental overdose [Recovered/Resolved with Sequelae]
  - Hepatotoxicity [Recovered/Resolved with Sequelae]
